FAERS Safety Report 14540764 (Version 1)
Quarter: 2018Q1

REPORT INFORMATION
  Report Type: Spontaneous
  Country: JP (occurrence: JP)
  Receive Date: 20180216
  Receipt Date: 20180216
  Transmission Date: 20180509
  Serious: Yes (Life-Threatening)
  Sender: FDA-Public Use
  Company Number: JP-OTSUKA-03100-JPN-07-0598

PATIENT
  Age: 51 Year
  Sex: Male
  Weight: 46.5 kg

DRUGS (9)
  1. DEPAKENE [Concomitant]
     Active Substance: VALPROIC ACID
     Indication: RESTLESSNESS
     Dosage: 200 MG, BID
     Route: 048
     Dates: start: 20060522
  2. ABILIFY [Suspect]
     Active Substance: ARIPIPRAZOLE
     Dosage: 6 MG, BID
     Route: 048
     Dates: start: 20071115, end: 20071127
  3. SEPAZON [Concomitant]
     Active Substance: CLOXAZOLAM
     Indication: RESTLESSNESS
     Dosage: 1 MG, BID
     Route: 048
     Dates: start: 20060522
  4. ARTANE [Concomitant]
     Active Substance: TRIHEXYPHENIDYL HYDROCHLORIDE
     Indication: PARKINSON^S DISEASE
     Dosage: 2 MG, BID
     Route: 048
     Dates: start: 20060522
  5. AMOBAN [Concomitant]
     Active Substance: ZOPICLONE
     Indication: INSOMNIA
     Dosage: 10 MG, QD
     Route: 048
     Dates: start: 20060522
  6. ABILIFY [Suspect]
     Active Substance: ARIPIPRAZOLE
     Dosage: 6 MG, TID
     Route: 048
     Dates: start: 20071101, end: 20071114
  7. SELBEX [Concomitant]
     Active Substance: TEPRENONE
     Indication: GASTRITIS
     Dosage: 50 MG, BID
     Route: 048
     Dates: start: 20060522
  8. BENZALIN [Concomitant]
     Active Substance: NITRAZEPAM
     Indication: INSOMNIA
     Dosage: 10 MG, QD
     Route: 048
     Dates: start: 20060522
  9. ABILIFY [Suspect]
     Active Substance: ARIPIPRAZOLE
     Indication: SCHIZOPHRENIA
     Dosage: UNK
     Route: 048
     Dates: start: 20070906, end: 20071031

REACTIONS (2)
  - Respiratory failure [Recovered/Resolved]
  - Altered state of consciousness [Recovered/Resolved]

NARRATIVE: CASE EVENT DATE: 20071114
